FAERS Safety Report 6341950-9 (Version None)
Quarter: 2009Q3

REPORT INFORMATION
  Report Type: 
  Country: None (occurrence: None)
  Receive Date: 20090904
  Receipt Date: 20090825
  Transmission Date: 20100115
  Serious: Yes (Hospitalization, Other)
  Sender: FDA-Public Use
  Company Number: US-AMGEN-QUU361617

PATIENT
  Sex: Female

DRUGS (7)
  1. NEULASTA [Suspect]
     Indication: CHEMOTHERAPY
     Route: 058
     Dates: start: 20090724
  2. CISPLATIN [Concomitant]
  3. ETOPOSIDE [Concomitant]
  4. HYDROCHLOROTHIAZIDE [Concomitant]
     Route: 048
  5. COMPAZINE [Concomitant]
     Route: 048
  6. CIPROFLAXACIN [Concomitant]
     Route: 048
  7. ZYRTEC [Concomitant]
     Route: 048

REACTIONS (12)
  - ABDOMINAL PAIN [None]
  - BEDRIDDEN [None]
  - BONE PAIN [None]
  - COLD SWEAT [None]
  - COUGH [None]
  - DISORIENTATION [None]
  - HYPERTENSION [None]
  - HYPOTENSION [None]
  - INCONTINENCE [None]
  - INFLUENZA [None]
  - MALAISE [None]
  - PRESYNCOPE [None]
